FAERS Safety Report 10105620 (Version 2)
Quarter: 2014Q2

REPORT INFORMATION
  Report Type: Other
  Country: US (occurrence: US)
  Receive Date: 20140424
  Receipt Date: 20140609
  Transmission Date: 20141212
  Serious: Yes (Hospitalization, Other)
  Sender: FDA-Public Use
  Company Number: US-GSKPPD-2014GSK000800

PATIENT
  Age: 64 Year
  Sex: Male

DRUGS (5)
  1. AVANDIA [Suspect]
     Indication: DIABETES MELLITUS
     Route: 048
     Dates: start: 20041210, end: 2008
  2. CARDIZEM CD [Concomitant]
  3. LASIX [Concomitant]
  4. LANOXIN [Concomitant]
  5. LOPRESSOR [Concomitant]

REACTIONS (2)
  - Myocardial infarction [None]
  - Atrial fibrillation [Recovered/Resolved]
